FAERS Safety Report 4964273-9 (Version None)
Quarter: 2006Q1

REPORT INFORMATION
  Report Type: 
  Country: None (occurrence: None)
  Receive Date: 20060331
  Receipt Date: 20060316
  Transmission Date: 20060701
  Serious: Yes (Other)
  Sender: FDA-Public Use
  Company Number: 219368

PATIENT
  Age: 53 Year
  Sex: Male
  Weight: 53 kg

DRUGS (9)
  1. BEVACIZUMAB (BEVACIZUMAB) [Suspect]
     Indication: NON-SMALL CELL LUNG CANCER
     Dosage: 15 MG, Q3W, INTRAVENOUS
     Route: 042
     Dates: start: 20050628, end: 20051027
  2. CISPLATIN [Suspect]
     Indication: NON-SMALL CELL LUNG CANCER
     Dosage: 80 MG/M2, Q3W, INTRAVENOUS
     Route: 042
     Dates: start: 20050628
  3. GEMCITABINE [Suspect]
     Indication: NON-SMALL CELL LUNG CANCER
     Dosage: 1250 MG/M2, X2, INTRAVENOUS
     Route: 042
     Dates: start: 20050628
  4. DIPOTASSIUM CLORAZEPATE (CLORAZEPATE DIPOTASSIUM) [Concomitant]
  5. SOLUPRED (PREDNISOLONE) [Concomitant]
  6. RABEPRAZOLE SODIUM [Concomitant]
  7. POLYSILANE (ALUMINUM HYDROXIDE, BISMUTH CARBONATE, CALCIUM CARBONATE, [Concomitant]
  8. LEVOMEPROMAZINE (METHOTRIMEPRAZINE) [Concomitant]
  9. INNOHEP [Concomitant]

REACTIONS (2)
  - DISEASE PROGRESSION [None]
  - LERICHE SYNDROME [None]
